FAERS Safety Report 10022742 (Version 1)
Quarter: 2014Q1

REPORT INFORMATION
  Report Type: Spontaneous
  Country: BR (occurrence: BR)
  Receive Date: 20140319
  Receipt Date: 20140319
  Transmission Date: 20141002
  Serious: Yes (Hospitalization)
  Sender: FDA-Public Use
  Company Number: BR-DSJP-DSJ-2014-100801AA

PATIENT
  Sex: 0

DRUGS (2)
  1. BENICAR [Suspect]
     Indication: HYPERTENSION
     Dosage: 40 MG, QD
     Route: 048
     Dates: end: 201312
  2. ATENOLOL [Concomitant]
     Dosage: UNKNOWN
     Route: 065

REACTIONS (3)
  - Infarction [Recovered/Resolved]
  - Haemorrhoids [Not Recovered/Not Resolved]
  - Off label use [Unknown]
